FAERS Safety Report 23659785 (Version 3)
Quarter: 2024Q3

REPORT INFORMATION
  Report Type: Spontaneous
  Country: US (occurrence: US)
  Receive Date: 20240321
  Receipt Date: 20240712
  Transmission Date: 20241016
  Serious: No
  Sender: SANOFI AVENTIS
  Company Number: US-SA-SAC20240315000701

PATIENT
  Sex: Female
  Weight: 67.1 kg

DRUGS (16)
  1. DUPIXENT [Suspect]
     Active Substance: DUPILUMAB
     Indication: Dermatitis atopic
     Dosage: 300 MG, QOW
     Route: 058
  2. DUPIXENT [Suspect]
     Active Substance: DUPILUMAB
     Indication: Nasal polyps
  3. DUPIXENT [Suspect]
     Active Substance: DUPILUMAB
     Indication: Dermatitis atopic
     Dosage: 300 MG, QOW
     Route: 058
  4. DUPIXENT [Suspect]
     Active Substance: DUPILUMAB
     Indication: Nasal polyps
  5. BUDESONIDE [Concomitant]
     Active Substance: BUDESONIDE
  6. BUDESONIDE [Concomitant]
     Active Substance: BUDESONIDE
  7. MONTELUKAST SODIUM [Concomitant]
     Active Substance: MONTELUKAST SODIUM
     Dosage: UNK
  8. MONTELUKAST SODIUM [Concomitant]
     Active Substance: MONTELUKAST SODIUM
  9. SYMBICORT [Concomitant]
     Active Substance: BUDESONIDE\FORMOTEROL FUMARATE DIHYDRATE
  10. SYMBICORT [Concomitant]
     Active Substance: BUDESONIDE\FORMOTEROL FUMARATE DIHYDRATE
  11. VITAMIN B1 [Concomitant]
     Active Substance: THIAMINE HYDROCHLORIDE
  12. ZYRTEC-D [Concomitant]
     Active Substance: CETIRIZINE HYDROCHLORIDE\PSEUDOEPHEDRINE HYDROCHLORIDE
  13. CALCIUM [Concomitant]
     Active Substance: CALCIUM
  14. IRON [Concomitant]
     Active Substance: IRON
  15. VITAMIN D NOS [Concomitant]
     Active Substance: CHOLECALCIFEROL\ERGOCALCIFEROL
  16. MAGNESIUM [Concomitant]
     Active Substance: MAGNESIUM

REACTIONS (8)
  - Seasonal allergy [Unknown]
  - Anxiety [Unknown]
  - Fatigue [Not Recovered/Not Resolved]
  - Sleep disorder [Not Recovered/Not Resolved]
  - Stress [Not Recovered/Not Resolved]
  - Exposure to fungus [Unknown]
  - Injection site pain [Unknown]
  - Drug ineffective [Unknown]

NARRATIVE: CASE EVENT DATE: 20240101
